FAERS Safety Report 5408291-5 (Version None)
Quarter: 2007Q3

REPORT INFORMATION
  Report Type: 
  Country: None (occurrence: None)
  Receive Date: 20070808
  Receipt Date: 20070803
  Transmission Date: 20080115
  Serious: Yes (Death)
  Sender: FDA-Public Use
  Company Number: US-BAXTER-2007BH006820

PATIENT
  Age: 90 Year
  Sex: Female

DRUGS (1)
  1. SODIUM CHLORIDE 0.9% IN PLASTIC CONTAINER [Suspect]
     Indication: HAEMODIALYSIS
     Dosage: DOSE UNIT:UNKNOWN
     Route: 010
     Dates: start: 20070801, end: 20070801

REACTIONS (2)
  - DEATH [None]
  - RESPIRATORY ARREST [None]
